FAERS Safety Report 6009102-X (Version None)
Quarter: 2008Q4

REPORT INFORMATION
  Report Type: 
  Country: None (occurrence: None)
  Receive Date: 20081216
  Receipt Date: 20081205
  Transmission Date: 20090506
  Serious: Yes (Hospitalization)
  Sender: FDA-Public Use
  Company Number: IPS_01332_2008

PATIENT
  Sex: Male

DRUGS (3)
  1. APO-GO          (APO-GO PUMP - APOMORPHINE HYDROCHLORIDE) [Suspect]
     Indication: PARKINSON'S DISEASE
     Dosage: ^4 TIMES IN 2 DAYS^, FOR UNKNOWN SUBCUTANEOUS
     Route: 058
     Dates: start: 20080801, end: 20080101
  2. APO-GO (APO-GO PUMP - APOMORPHINE HYDROCHLORIDE) [Suspect]
     Indication: PARKINSON'S DISEASE
     Dosage: DF FOR UNKNOWN SUBCUTANEOUS
     Route: 058
     Dates: start: 20080101
  3. APO-GO (APO-GO PEN - APOMORPHINE HYDROCHLORIDE [Suspect]
     Indication: PARKINSON'S DISEASE
     Dosage: DF, FOR 8 WEEKS SUBCUTANEOUS
     Route: 058
     Dates: start: 20080601, end: 20080801

REACTIONS (11)
  - APATHY [None]
  - COGNITIVE DISORDER [None]
  - COUGH [None]
  - DEPRESSION [None]
  - DYSPHEMIA [None]
  - INFLUENZA LIKE ILLNESS [None]
  - MUSCLE SPASMS [None]
  - NASAL CONGESTION [None]
  - NASOPHARYNGITIS [None]
  - PANIC ATTACK [None]
  - PHARYNGITIS [None]
